FAERS Safety Report 8454693-2 (Version None)
Quarter: 2012Q2

REPORT INFORMATION
  Report Type: 
  Country: None (occurrence: None)
  Receive Date: 20120615
  Receipt Date: 20120615
  Transmission Date: 20120825
  Serious: Yes (Other)
  Sender: FDA-Public Use
  Company Number: None

PATIENT
  Sex: Female
  Weight: 69.8539 kg

DRUGS (1)
  1. ESCITALOPRAM [Suspect]
     Indication: MAJOR DEPRESSION
     Dosage: 20 MG 1 TAB QD ORAL 3 TO 4 WEEKS OF USE
     Route: 048

REACTIONS (5)
  - DEPRESSION [None]
  - CONDITION AGGRAVATED [None]
  - FEELING ABNORMAL [None]
  - CRYING [None]
  - IRRITABILITY [None]
